FAERS Safety Report 24973631 (Version 2)
Quarter: 2025Q2

REPORT INFORMATION
  Report Type: Report from Study
  Country: CA (occurrence: CA)
  Receive Date: 20250217
  Receipt Date: 20250402
  Transmission Date: 20250716
  Serious: Yes (Hospitalization)
  Sender: ABBVIE
  Company Number: CA-ABBVIE-6131687

PATIENT
  Age: 79 Year
  Sex: Female

DRUGS (1)
  1. RINVOQ [Suspect]
     Active Substance: UPADACITINIB
     Indication: Rheumatoid arthritis
     Dosage: FORM STRENGTH- 15 MG
     Route: 048
     Dates: end: 20241225

REACTIONS (2)
  - Lower limb fracture [Unknown]
  - Hip arthroplasty [Recovering/Resolving]

NARRATIVE: CASE EVENT DATE: 20241225
